FAERS Safety Report 23643145 (Version 1)
Quarter: 2024Q1

REPORT INFORMATION
  Report Type: Spontaneous
  Country: US (occurrence: US)
  Receive Date: 20240318
  Receipt Date: 20240318
  Transmission Date: 20240410
  Serious: Yes (Hospitalization)
  Sender: FDA-Public Use
  Company Number: US-TEVA-VS-3168102

PATIENT
  Weight: 51 kg

DRUGS (2)
  1. BUPROPION [Suspect]
     Active Substance: BUPROPION
     Indication: Suicide attempt
     Dosage: FORMULATION: PILLS
     Route: 048
  2. SERTRALINE [Suspect]
     Active Substance: SERTRALINE HYDROCHLORIDE
     Indication: Suicide attempt
     Dosage: (27.5 MG/KG)
     Route: 048

REACTIONS (3)
  - Serotonin syndrome [Recovering/Resolving]
  - Seizure [Recovering/Resolving]
  - Intentional overdose [Unknown]
